FAERS Safety Report 9559596 (Version 2)
Quarter: 2013Q4

REPORT INFORMATION
  Report Type: Spontaneous
  Country: US (occurrence: None)
  Receive Date: 20130925
  Receipt Date: 20131031
  Transmission Date: 20140711
  Serious: Yes (Hospitalization)
  Sender: FDA-Public Use
  Company Number: 2013DEPUS00552

PATIENT
  Age: 63 Year
  Sex: Female
  Weight: 83.9 kg

DRUGS (1)
  1. DEPOCYT(E) (CYTARABINE) LIPOSOME INJECTABLE SUSPENSION [Suspect]
     Indication: DIFFUSE LARGE B-CELL LYMPHOMA
     Route: 037
     Dates: start: 20130809, end: 20130809

REACTIONS (4)
  - Muscular weakness [None]
  - Hypoaesthesia [None]
  - Muscular weakness [None]
  - Balance disorder [None]
